FAERS Safety Report 24670490 (Version 1)
Quarter: 2024Q4

REPORT INFORMATION
  Report Type: Spontaneous
  Country: US (occurrence: None)
  Receive Date: 20241126
  Receipt Date: 20241126
  Transmission Date: 20250115
  Serious: Yes (Death)
  Sender: Public
  Company Number: None

PATIENT
  Age: 79 Year
  Sex: Female

DRUGS (1)
  1. TACROLIMUS [Suspect]
     Active Substance: TACROLIMUS
     Indication: Renal transplant
     Dosage: 1 M,G/MG TWICE A DAY ORAL
     Route: 048
     Dates: start: 20100122, end: 20241016

REACTIONS (1)
  - Death [None]

NARRATIVE: CASE EVENT DATE: 20241016
